FAERS Safety Report 9323834 (Version 3)
Quarter: 2013Q3

REPORT INFORMATION
  Report Type: Spontaneous
  Country: JP (occurrence: JP)
  Receive Date: 20130603
  Receipt Date: 20130708
  Transmission Date: 20140515
  Serious: Yes (Other)
  Sender: FDA-Public Use
  Company Number: JP-ASTELLAS-2013JP006033

PATIENT
  Age: 67 Year
  Sex: Male
  Weight: 51.7 kg

DRUGS (6)
  1. FUNGUARD [Suspect]
     Indication: BLOOD BETA-D-GLUCAN INCREASED
     Dosage: 100 MG, UID/QD
     Route: 041
     Dates: start: 20130516, end: 20130516
  2. PREDONINE                          /00016201/ [Concomitant]
     Indication: NEPHRITIS
     Dosage: 12.5 MG, UID/QD
     Route: 048
  3. ONEALFA [Concomitant]
     Dosage: 0.25 UG, UID/QD
     Route: 048
  4. PROMAC                             /01312301/ [Concomitant]
     Dosage: 75 MG, BID
     Route: 048
  5. PIARLE [Concomitant]
     Dosage: 20 ML, BID
     Route: 048
  6. AMINOVACT [Concomitant]
     Dosage: 1 DF, TID
     Route: 048

REACTIONS (4)
  - Injection site pain [Recovering/Resolving]
  - Injection site erythema [Recovering/Resolving]
  - Injection site swelling [Recovering/Resolving]
  - Injection site extravasation [Unknown]
